FAERS Safety Report 23633042 (Version 1)
Quarter: 2024Q1

REPORT INFORMATION
  Report Type: Spontaneous
  Country: SE (occurrence: SE)
  Receive Date: 20240314
  Receipt Date: 20240314
  Transmission Date: 20240410
  Serious: Yes (Death)
  Sender: FDA-Public Use
  Company Number: None

PATIENT
  Age: 69 Year
  Sex: Male
  Weight: 53 kg

DRUGS (6)
  1. SYNJARDY [Suspect]
     Active Substance: EMPAGLIFLOZIN\METFORMIN HYDROCHLORIDE
     Indication: Diabetes mellitus
     Dosage: 12,5 MG/1000 MG
     Route: 048
     Dates: start: 201712, end: 202201
  2. Cardizem Retard 120 mg prolonged release tablet [Concomitant]
     Indication: Product used for unknown indication
     Route: 048
     Dates: start: 202004, end: 202201
  3. Esomeprazol Actavis 40 mg Enterotablet [Concomitant]
     Indication: Product used for unknown indication
     Dosage: FORM OF ADMIN.: ENTERO TABLET
     Route: 048
  4. Rosuvastatin STADA 40 mg Film-coated tablet [Concomitant]
     Indication: Product used for unknown indication
     Route: 048
     Dates: start: 202107, end: 202201
  5. JANUVIA [Concomitant]
     Active Substance: SITAGLIPTIN PHOSPHATE
     Indication: Product used for unknown indication
     Route: 048
     Dates: start: 201903, end: 202201
  6. Saroten 10 mg Film-coated tablet [Concomitant]
     Indication: Product used for unknown indication
     Route: 048
     Dates: start: 201910, end: 202201

REACTIONS (3)
  - Ketoacidosis [Fatal]
  - Haematemesis [Fatal]
  - Acute kidney injury [Fatal]

NARRATIVE: CASE EVENT DATE: 20220101
